FAERS Safety Report 19709612 (Version 1)
Quarter: 2021Q3

REPORT INFORMATION
  Report Type: Spontaneous
  Country: PL (occurrence: PL)
  Receive Date: 20210817
  Receipt Date: 20210817
  Transmission Date: 20211014
  Serious: Yes (Death, Other)
  Sender: FDA-Public Use
  Company Number: PL-MYLANLABS-2021M1050893

PATIENT
  Age: 68 Year
  Sex: Male

DRUGS (2)
  1. GENTAMYCIN                         /00047101/ [Concomitant]
     Active Substance: GENTAMICIN
     Indication: PRODUCT USED FOR UNKNOWN INDICATION
     Dosage: UNK
     Route: 065
  2. VANCOMYCIN [Suspect]
     Active Substance: VANCOMYCIN
     Indication: PRODUCT USED FOR UNKNOWN INDICATION
     Dosage: UNK
     Route: 065

REACTIONS (18)
  - Staphylococcal infection [Unknown]
  - Loss of consciousness [Unknown]
  - Cardiac failure [Unknown]
  - Myocardial infarction [Unknown]
  - Aortic valve incompetence [Unknown]
  - Death [Fatal]
  - Tachycardia [Unknown]
  - Cardiac valve disease [Unknown]
  - Coagulopathy [Unknown]
  - Hypoxia [Unknown]
  - Bundle branch block left [Unknown]
  - Coma scale abnormal [Unknown]
  - Hypertension [Unknown]
  - Sedation complication [Unknown]
  - Pyrexia [Unknown]
  - Mydriasis [Unknown]
  - Hypotonia [Unknown]
  - Dyspnoea [Unknown]

NARRATIVE: CASE EVENT DATE: 20210122
